FAERS Safety Report 24063392 (Version 4)
Quarter: 2025Q1

REPORT INFORMATION
  Report Type: Report from Study
  Country: US (occurrence: US)
  Receive Date: 20240709
  Receipt Date: 20250320
  Transmission Date: 20250409
  Serious: No
  Sender: TAKEDA
  Company Number: US-TAKEDA-2024TUS054782

PATIENT
  Sex: Female
  Weight: 46 kg

DRUGS (13)
  1. TEDUGLUTIDE [Suspect]
     Active Substance: TEDUGLUTIDE
     Indication: Short-bowel syndrome
     Dosage: 2.25 MILLIGRAM, QD
  2. TEDUGLUTIDE [Suspect]
     Active Substance: TEDUGLUTIDE
     Dosage: 2.25 MILLIGRAM, QD
  3. TEDUGLUTIDE [Suspect]
     Active Substance: TEDUGLUTIDE
     Dosage: 2.25 MILLIGRAM, QD
  4. TEDUGLUTIDE [Suspect]
     Active Substance: TEDUGLUTIDE
     Dosage: 2.25 MILLIGRAM, QD
  5. TEDUGLUTIDE [Suspect]
     Active Substance: TEDUGLUTIDE
     Dosage: 2.25 MILLIGRAM, QD
  6. PRAMIPEXOLE DIHYDROCHLORIDE [Concomitant]
     Active Substance: PRAMIPEXOLE DIHYDROCHLORIDE
  7. ZOLPIDEM TARTRATE [Concomitant]
     Active Substance: ZOLPIDEM TARTRATE
  8. CLONAZEPAM [Concomitant]
     Active Substance: CLONAZEPAM
  9. VIMPAT [Concomitant]
     Active Substance: LACOSAMIDE
  10. SERTRALINE HYDROCHLORIDE [Concomitant]
     Active Substance: SERTRALINE HYDROCHLORIDE
  11. METRONIDAZOLE [Concomitant]
     Active Substance: METRONIDAZOLE
  12. METHOTREXATE [Concomitant]
     Active Substance: METHOTREXATE
  13. PREDNISONE [Concomitant]
     Active Substance: PREDNISONE

REACTIONS (2)
  - Wrist fracture [Unknown]
  - Product dose omission issue [Unknown]
